FAERS Safety Report 23395960 (Version 1)
Quarter: 2024Q1

REPORT INFORMATION
  Report Type: Spontaneous
  Country: CA (occurrence: CA)
  Receive Date: 20240112
  Receipt Date: 20240112
  Transmission Date: 20240410
  Serious: Yes (Life-Threatening, Hospitalization)
  Sender: FDA-Public Use
  Company Number: CA-JNJFOC-20240125576

PATIENT
  Age: 81 Year
  Sex: Male
  Weight: 92 kg

DRUGS (1)
  1. ERLEADA [Suspect]
     Active Substance: APALUTAMIDE
     Indication: Prostate cancer
     Route: 048

REACTIONS (3)
  - Neutropenia [Recovered/Resolved]
  - Mucosal inflammation [Recovered/Resolved]
  - Rash [Recovered/Resolved]
